FAERS Safety Report 6983432-7 (Version None)
Quarter: 2010Q3

REPORT INFORMATION
  Report Type: 
  Country: None (occurrence: None)
  Receive Date: 20100913
  Receipt Date: 20100913
  Transmission Date: 20110219
  Serious: Yes (Other)
  Sender: FDA-Public Use
  Company Number: None

PATIENT
  Sex: Female
  Weight: 65.7716 kg

DRUGS (1)
  1. LAMICTAL [Suspect]
     Dosage: 150MG DAILY PO
     Route: 048
     Dates: start: 20080901

REACTIONS (2)
  - MOOD SWINGS [None]
  - PRODUCT SUBSTITUTION ISSUE [None]
